FAERS Safety Report 4372956-7 (Version None)
Quarter: 2004Q2

REPORT INFORMATION
  Report Type: 
  Country: None (occurrence: None)
  Receive Date: 20040603
  Receipt Date: 20040524
  Transmission Date: 20050107
  Serious: Yes (Death)
  Sender: FDA-Public Use
  Company Number: F04200400158

PATIENT
  Age: 84 Year
  Sex: Male

DRUGS (2)
  1. ARIXTRA [Suspect]
     Indication: HIP ARTHROPLASTY
     Dosage: 2.5 MG OD
     Route: 058
     Dates: start: 20030623, end: 20030629
  2. ARIXTRA [Suspect]
     Indication: THROMBOSIS PROPHYLAXIS
     Dosage: 2.5 MG OD
     Route: 058
     Dates: start: 20030623, end: 20030629

REACTIONS (3)
  - HAEMORRHAGE [None]
  - HYPOVOLAEMIC SHOCK [None]
  - IATROGENIC INJURY [None]
